FAERS Safety Report 7792480-9 (Version None)
Quarter: 2011Q4

REPORT INFORMATION
  Report Type: 
  Country: None (occurrence: None)
  Receive Date: 20111003
  Receipt Date: 20110928
  Transmission Date: 20120403
  Serious: Yes (Hospitalization, Other)
  Sender: FDA-Public Use
  Company Number: US-PFIZER INC-2011117103

PATIENT
  Sex: Male

DRUGS (10)
  1. AZATHIOPRINE [Concomitant]
     Indication: WEGENER'S GRANULOMATOSIS
     Dosage: UNK
     Dates: start: 20050101, end: 20110301
  2. LANTUS [Concomitant]
     Indication: DIABETES MELLITUS
     Dosage: UNK
     Dates: start: 20040101
  3. PREDNISONE [Concomitant]
     Indication: HEADACHE
     Dosage: UNK
     Dates: start: 20040101, end: 20110601
  4. AMBIEN [Concomitant]
     Indication: INSOMNIA
     Dosage: UNK
     Dates: start: 20050101
  5. LIPITOR [Concomitant]
     Indication: HYPERLIPIDAEMIA
     Dosage: UNK
     Dates: start: 20000101
  6. CHANTIX [Suspect]
     Indication: SMOKING CESSATION THERAPY
     Dosage: 1 MG, UNK
     Dates: start: 20070212, end: 20080701
  7. BACTRIUM DS [Concomitant]
     Indication: WEGENER'S GRANULOMATOSIS
     Dosage: UNK
     Dates: start: 20050101, end: 20110101
  8. LISINOPRIL [Concomitant]
     Indication: HYPERTENSION
     Dosage: UNK
     Dates: start: 20030101
  9. NOVOLOG [Concomitant]
     Indication: DIABETES MELLITUS
     Dosage: UNK
     Dates: start: 20050101
  10. METFORMIN [Concomitant]
     Indication: DIABETES MELLITUS
     Dosage: UNK
     Dates: start: 20070101, end: 20110601

REACTIONS (7)
  - SUICIDE ATTEMPT [None]
  - COGNITIVE DISORDER [None]
  - DEPRESSION [None]
  - INSOMNIA [None]
  - ANXIETY [None]
  - AGGRESSION [None]
  - INTENTIONAL OVERDOSE [None]
